FAERS Safety Report 8095927-6 (Version None)
Quarter: 2012Q1

REPORT INFORMATION
  Report Type: 
  Country: None (occurrence: None)
  Receive Date: 20120129
  Receipt Date: 20111222
  Transmission Date: 20120608
  Serious: No
  Sender: FDA-Public Use
  Company Number: US-ABBOTT-11P-163-0886702-00

PATIENT
  Age: 57 Year
  Sex: Female

DRUGS (4)
  1. VENOFER [Concomitant]
     Indication: ANAEMIA
     Dosage: 1 INFUSION WEEKLY FOR 4 WEEKS, 4 WEEKS OFF
  2. CLIMARA [Concomitant]
     Indication: HORMONE REPLACEMENT THERAPY
     Dosage: 1 PATCH WEEKLY
  3. PROCRIT [Concomitant]
     Indication: ANAEMIA
  4. HUMIRA [Suspect]
     Indication: CROHN'S DISEASE
     Dates: start: 20090101

REACTIONS (2)
  - FALL [None]
  - INJECTION SITE SWELLING [None]
